FAERS Safety Report 12632741 (Version 2)
Quarter: 2016Q3

REPORT INFORMATION
  Report Type: Spontaneous
  Country: US (occurrence: US)
  Receive Date: 20160808
  Receipt Date: 20160808
  Transmission Date: 20161109
  Serious: No
  Sender: FDA-Public Use
  Company Number: US-BEH-2015056697

PATIENT
  Sex: Female
  Weight: 67 kg

DRUGS (36)
  1. HIZENTRA [Suspect]
     Active Substance: HUMAN IMMUNOGLOBULIN G
     Route: 058
  2. VITAMIN D3 [Concomitant]
     Active Substance: CHOLECALCIFEROL
  3. LEVOTHYROXINE. [Concomitant]
     Active Substance: LEVOTHYROXINE
  4. ZYRTEC [Concomitant]
     Active Substance: CETIRIZINE HYDROCHLORIDE
  5. METAMUCIL [Concomitant]
     Active Substance: PLANTAGO SEED
  6. DIPHENHYDRAMINE. [Concomitant]
     Active Substance: DIPHENHYDRAMINE
  7. POTASSIUM [Concomitant]
     Active Substance: POTASSIUM
  8. PRAVASTATIN. [Concomitant]
     Active Substance: PRAVASTATIN
  9. IRON [Concomitant]
     Active Substance: IRON
  10. IBUPROFEN. [Concomitant]
     Active Substance: IBUPROFEN
  11. COQ10 [Concomitant]
     Active Substance: UBIDECARENONE
  12. MECLIZINE [Concomitant]
     Active Substance: MECLIZINE HYDROCHLORIDE
  13. CALCIUM MAGNESIUM ZINC [Concomitant]
     Active Substance: CALCIUM\MAGNESIUM\ZINC
  14. IMODIUM AD [Concomitant]
     Active Substance: LOPERAMIDE HYDROCHLORIDE
  15. HYDROCODONE-ACETAMINOPHEN [Concomitant]
     Active Substance: ACETAMINOPHEN\HYDROCODONE
  16. ACETAZOLAMIDE. [Concomitant]
     Active Substance: ACETAZOLAMIDE
  17. HIZENTRA [Suspect]
     Active Substance: HUMAN IMMUNOGLOBULIN G
     Route: 058
  18. OMEPRAZOLE. [Concomitant]
     Active Substance: OMEPRAZOLE
  19. TRIAMTERENE-HCTZ [Concomitant]
     Active Substance: HYDROCHLOROTHIAZIDE\TRIAMTERENE
  20. COMPLETE MULTIVITAMIN [Concomitant]
     Active Substance: VITAMINS
  21. L-LYSINE [Concomitant]
     Active Substance: LYSINE
  22. LIDOCAINE. [Concomitant]
     Active Substance: LIDOCAINE
  23. RESTASIS [Concomitant]
     Active Substance: CYCLOSPORINE
  24. VENTOLIN [Concomitant]
     Active Substance: ALBUTEROL SULFATE
  25. TYLENOL EXTRA STRENGTH [Concomitant]
     Active Substance: ACETAMINOPHEN
  26. BENZOYL PEROXIDE. [Concomitant]
     Active Substance: BENZOYL PEROXIDE
  27. PREDNISONE. [Concomitant]
     Active Substance: PREDNISONE
  28. MUCINEX [Concomitant]
     Active Substance: GUAIFENESIN
  29. DHEA [Concomitant]
     Active Substance: PRASTERONE
  30. METHYLPREDNISOLONE. [Concomitant]
     Active Substance: METHYLPREDNISOLONE
  31. HIZENTRA [Suspect]
     Active Substance: HUMAN IMMUNOGLOBULIN G
     Indication: IMMUNODEFICIENCY COMMON VARIABLE
     Route: 058
  32. BREO ELLIPTA [Concomitant]
     Active Substance: FLUTICASONE FUROATE\VILANTEROL TRIFENATATE
  33. PEPTO-BISMO [Concomitant]
  34. VITAMIN C [Concomitant]
     Active Substance: ASCORBIC ACID
  35. DULCOLAX NOS [Concomitant]
     Active Substance: BISACODYL OR DOCUSATE SODIUM
  36. EPIPEN [Concomitant]
     Active Substance: EPINEPHRINE

REACTIONS (1)
  - Sinusitis [Unknown]
